FAERS Safety Report 22070804 (Version 1)
Quarter: 2023Q1

REPORT INFORMATION
  Report Type: Spontaneous
  Country: US (occurrence: None)
  Receive Date: 20230307
  Receipt Date: 20230307
  Transmission Date: 20230418
  Serious: Yes (Other)
  Sender: FDA-Public Use
  Company Number: None

PATIENT
  Age: 60 Year
  Sex: Female

DRUGS (2)
  1. CETAPHIL HEALTHY RADIANCE WHIPPED DAY CREAM BROAD SPECTRUM SPF 30 [Suspect]
     Active Substance: AVOBENZONE\HOMOSALATE\OCTISALATE\OCTOCRYLENE
     Indication: Dry skin prophylaxis
     Dates: start: 20230305, end: 20230305
  2. CETAPHIL HEALTHY RADIANCE WHIPPED DAY CREAM BROAD SPECTRUM SPF 30 [Suspect]
     Active Substance: AVOBENZONE\HOMOSALATE\OCTISALATE\OCTOCRYLENE
     Indication: Prophylaxis against solar radiation

REACTIONS (3)
  - Chemical burn [None]
  - Application site burn [None]
  - Blister [None]

NARRATIVE: CASE EVENT DATE: 20230305
